FAERS Safety Report 10645287 (Version 1)
Quarter: 2014Q4

REPORT INFORMATION
  Report Type: Spontaneous
  Country: US (occurrence: None)
  Receive Date: 20141209
  Receipt Date: 20141209
  Transmission Date: 20150529
  Serious: Yes (Other)
  Sender: FDA-Public Use
  Company Number: FK201405848

PATIENT
  Age: 81 Year
  Sex: Female

DRUGS (1)
  1. METHOTREXATE (MANUFACTURER UNKNOWN)(METHOTREXATE) (METHOTREXATE) [Suspect]
     Active Substance: METHOTREXATE
     Indication: RHEUMATOID ARTHRITIS
     Route: 048

REACTIONS (2)
  - Hodgkin^s disease [None]
  - Epstein-Barr virus associated lymphoproliferative disorder [None]
